FAERS Safety Report 8329893-2 (Version None)
Quarter: 2012Q2

REPORT INFORMATION
  Report Type: 
  Country: None (occurrence: None)
  Receive Date: 20120502
  Receipt Date: 20120424
  Transmission Date: 20120825
  Serious: Yes (Other)
  Sender: FDA-Public Use
  Company Number: US-PFIZER INC-2012103377

PATIENT
  Age: 58 Year
  Sex: Female

DRUGS (1)
  1. ATORVASTATIN CALCIUM [Suspect]
     Dosage: 40 MG, UNK
     Dates: start: 20120401, end: 20120401

REACTIONS (4)
  - HYPERSENSITIVITY [None]
  - URTICARIA [None]
  - PRURITUS GENERALISED [None]
  - FEELING HOT [None]
